FAERS Safety Report 5619318-X (Version None)
Quarter: 2008Q1

REPORT INFORMATION
  Report Type: 
  Country: None (occurrence: None)
  Receive Date: 20080114
  Receipt Date: 20070313
  Transmission Date: 20080703
  Serious: Yes (Death, Hospitalization)
  Sender: FDA-Public Use
  Company Number: A03200701966

PATIENT
  Sex: Female

DRUGS (2)
  1. PLAVIX [Suspect]
     Indication: FAMILIAL RISK FACTOR
     Dosage: ORAL
     Route: 048
     Dates: start: 20030101
  2. ASPIRIN [Suspect]
     Indication: FAMILIAL RISK FACTOR
     Dosage: ORAL
     Route: 048
     Dates: start: 20030101

REACTIONS (1)
  - HAEMORRHAGIC STROKE [None]
